FAERS Safety Report 6925013-7 (Version None)
Quarter: 2010Q3

REPORT INFORMATION
  Report Type: 
  Country: None (occurrence: None)
  Receive Date: 20100816
  Receipt Date: 20100804
  Transmission Date: 20110219
  Serious: Yes (Hospitalization, Disabling)
  Sender: FDA-Public Use
  Company Number: GB-PFIZER INC-2010092234

PATIENT
  Age: 35 Year
  Sex: Female
  Weight: 73 kg

DRUGS (6)
  1. CHAMPIX [Suspect]
     Indication: SMOKING CESSATION THERAPY
     Dosage: 1 MG, 1X/DAY
  2. PHYLLOCONTIN [Concomitant]
     Indication: ASTHMA
     Dosage: 225 MG, 2X/DAY
     Dates: start: 20080806
  3. TERBINAFINE [Concomitant]
     Indication: ONYCHOMYCOSIS
     Dosage: 250 MG, 1X/DAY
     Dates: start: 20080812
  4. SYMBICORT [Concomitant]
     Indication: ASTHMA
     Dosage: 2 DF, 2X/DAY
     Route: 055
  5. MONTELUKAST [Concomitant]
     Indication: ASTHMA
     Dosage: 10 MG, 1X/DAY
  6. VENTOLIN [Concomitant]
     Indication: ASTHMA
     Dosage: 2 DF, 2X/DAY
     Route: 055

REACTIONS (20)
  - ABNORMAL DREAMS [None]
  - AGGRESSION [None]
  - ASOCIAL BEHAVIOUR [None]
  - DEPRESSED MOOD [None]
  - FALL [None]
  - FEELING ABNORMAL [None]
  - HALLUCINATION, VISUAL [None]
  - HEAD BANGING [None]
  - LOSS OF CONSCIOUSNESS [None]
  - LOSS OF EMPLOYMENT [None]
  - MOOD SWINGS [None]
  - NAUSEA [None]
  - NIGHTMARE [None]
  - PARANOIA [None]
  - PARTNER STRESS [None]
  - PETIT MAL EPILEPSY [None]
  - SCRATCH [None]
  - SELF-INJURIOUS IDEATION [None]
  - TEARFULNESS [None]
  - TINNITUS [None]
